FAERS Safety Report 16397760 (Version 1)
Quarter: 2019Q2

REPORT INFORMATION
  Report Type: Spontaneous
  Country: US (occurrence: US)
  Receive Date: 20190606
  Receipt Date: 20190606
  Transmission Date: 20190711
  Serious: No
  Sender: FDA-Public Use
  Company Number: US-BAYER-2019-108977

PATIENT
  Age: 68 Year
  Sex: Female
  Weight: 74.83 kg

DRUGS (1)
  1. MIRALAX [Suspect]
     Active Substance: POLYETHYLENE GLYCOL 3350
     Indication: COLITIS ULCERATIVE
     Dosage: 1 DF, QD
     Route: 048

REACTIONS (3)
  - Off label use [None]
  - Product contamination physical [None]
  - Product use in unapproved indication [None]
